FAERS Safety Report 5022310-X (Version None)
Quarter: 2006Q2

REPORT INFORMATION
  Report Type: 
  Country: None (occurrence: None)
  Receive Date: 20060609
  Receipt Date: 20060531
  Transmission Date: 20061013
  Serious: Yes (Hospitalization, Other)
  Sender: FDA-Public Use
  Company Number: PHBS2006JP08301

PATIENT
  Age: 35 Year
  Sex: Male

DRUGS (2)
  1. VOLTAREN [Suspect]
     Indication: NASOPHARYNGITIS
     Route: 048
     Dates: start: 20060526, end: 20060528
  2. FLOMOX [Suspect]
     Route: 048
     Dates: start: 20060526

REACTIONS (4)
  - BLOOD CREATINE PHOSPHOKINASE INCREASED [None]
  - MYALGIA [None]
  - MYOGLOBIN BLOOD PRESENT [None]
  - RHABDOMYOLYSIS [None]
